FAERS Safety Report 6477210-5 (Version None)
Quarter: 2009Q4

REPORT INFORMATION
  Report Type: 
  Country: None (occurrence: None)
  Receive Date: 20091207
  Receipt Date: 20091124
  Transmission Date: 20100525
  Serious: Yes (Other)
  Sender: FDA-Public Use
  Company Number: PHEH2009US14702

PATIENT
  Sex: Male
  Weight: 97.2 kg

DRUGS (7)
  1. GLEEVEC [Suspect]
     Indication: CHRONIC MYELOID LEUKAEMIA
     Dosage: 400 MG, QD
     Route: 048
     Dates: start: 20080310, end: 20080901
  2. GLEEVEC [Suspect]
     Dosage: 600 MG, QD
     Dates: start: 20080901, end: 20090424
  3. GLEEVEC [Suspect]
     Dosage: 800 MG, QD
     Dates: start: 20090424, end: 20091029
  4. DIOVAN [Concomitant]
     Indication: HYPERTENSION
     Dosage: 160 MG, QD
     Route: 048
     Dates: start: 20090305
  5. LASIX [Concomitant]
     Dosage: 20 MG, QD
     Dates: start: 20090811
  6. LIPITOR [Concomitant]
     Indication: HYPERCHOLESTEROLAEMIA
     Dosage: 10 MG, QD
     Dates: start: 20090305
  7. PEPCID [Concomitant]

REACTIONS (19)
  - ANAEMIA [None]
  - BIOPSY BONE MARROW ABNORMAL [None]
  - BLAST CRISIS IN MYELOGENOUS LEUKAEMIA [None]
  - BLOOD CREATININE DECREASED [None]
  - BLOOD GLUCOSE INCREASED [None]
  - BLOOD PRESSURE INCREASED [None]
  - BREAST TENDERNESS [None]
  - CHEST PAIN [None]
  - CHLOROMA [None]
  - CHROMOSOME ANALYSIS ABNORMAL [None]
  - DIVERTICULUM [None]
  - DYSPHAGIA [None]
  - ERYTHEMA [None]
  - LUNG DISORDER [None]
  - OESOPHAGEAL STENOSIS [None]
  - PAIN [None]
  - PLEURAL EFFUSION [None]
  - PULMONARY MASS [None]
  - WEIGHT DECREASED [None]
